FAERS Safety Report 18507172 (Version 2)
Quarter: 2021Q2

REPORT INFORMATION
  Report Type: Spontaneous
  Country: CA (occurrence: CA)
  Receive Date: 20201116
  Receipt Date: 20210429
  Transmission Date: 20210717
  Serious: Yes (Other)
  Sender: FDA-Public Use
  Company Number: CA-SAMSUNG BIOEPIS-SB-2020-34377

PATIENT
  Age: 51 Year
  Sex: Female

DRUGS (2)
  1. INFLIXIMAB [Suspect]
     Active Substance: INFLIXIMAB
     Route: 042
  2. INFLIXIMAB [Suspect]
     Active Substance: INFLIXIMAB
     Indication: CROHN^S DISEASE
     Route: 042

REACTIONS (11)
  - Product dose omission issue [Unknown]
  - Malaise [Unknown]
  - Tooth disorder [Unknown]
  - Inappropriate schedule of product administration [Unknown]
  - Intentional product use issue [Unknown]
  - Blood pressure increased [Unknown]
  - Intentional product misuse [Unknown]
  - Crying [Unknown]
  - Anal fistula [Unknown]
  - Arthralgia [Unknown]
  - Large intestinal ulcer [Unknown]
